FAERS Safety Report 8812804 (Version 1)
Quarter: 2012Q4

REPORT INFORMATION
  Report Type: 
  Country: US (occurrence: US)
  Receive Date: 20120927
  Receipt Date: 20120927
  Transmission Date: 20130627
  Serious: No
  Sender: FDA-Public Use
  Company Number: US-AMGEN-USASP2012034443

PATIENT
  Age: 53 Year
  Sex: Male

DRUGS (9)
  1. XGEVA [Suspect]
     Indication: LUNG CANCER METASTATIC
     Dosage: 120 mg, q4wk
  2. FENTANYL [Concomitant]
     Dosage: UNK
  3. DILAUDID [Concomitant]
  4. DEXAMETHASONE [Concomitant]
  5. PROMETHAZINE [Concomitant]
  6. LAXATIVES [Concomitant]
  7. OMEPRAZOLE [Concomitant]
  8. ONDANSETRON [Concomitant]
  9. NICOTINE [Concomitant]

REACTIONS (1)
  - Dyspnoea [Unknown]
